FAERS Safety Report 6736752-5 (Version None)
Quarter: 2010Q2

REPORT INFORMATION
  Report Type: 
  Country: None (occurrence: None)
  Receive Date: 20100521
  Receipt Date: 20100514
  Transmission Date: 20101027
  Serious: Yes (Other)
  Sender: FDA-Public Use
  Company Number: BR-PFIZER INC-2010061343

PATIENT
  Age: 47 Year
  Sex: Female
  Weight: 61 kg

DRUGS (9)
  1. CHAMPIX [Suspect]
     Indication: TOBACCO USER
     Dosage: UNK
     Route: 048
     Dates: start: 20100511
  2. CHAMPIX [Suspect]
     Dosage: 1 MG (2 TABLETS OF 0.5 MG), 1X/DAY (EVERY 24 HOURS)
     Route: 048
  3. SERETIDE [Concomitant]
     Indication: EMPHYSEMA
     Dosage: UNK
  4. ATROVENT [Concomitant]
     Indication: EMPHYSEMA
     Dosage: UNK
  5. BEROTEC [Concomitant]
     Indication: EMPHYSEMA
     Dosage: UNK
  6. PREDNISONE [Concomitant]
     Dosage: UNK
  7. PROXACIN [Concomitant]
     Dosage: UNK
  8. LOSARTAN POTASSIUM [Concomitant]
     Indication: HYPERTENSION
     Dosage: UNK
  9. AMLODIPINE BESILATE [Concomitant]
     Indication: HYPERTENSION
     Dosage: UNK

REACTIONS (1)
  - SELF-INJURIOUS IDEATION [None]
